FAERS Safety Report 9185290 (Version 1)
Quarter: 2012Q4

REPORT INFORMATION
  Report Type: 
  Country: JP (occurrence: JP)
  Receive Date: 20121101
  Receipt Date: 20121101
  Transmission Date: 20130627
  Serious: Yes (Other)
  Sender: FDA-Public Use
  Company Number: JP-OTSUKA-JP-2012-16303

PATIENT
  Age: 79 None
  Sex: Male
  Weight: 50 kg

DRUGS (9)
  1. SAMSCA [Suspect]
     Indication: FLUID RETENTION
     Dosage: 3.75 Mg milligram(s), qam
     Route: 048
     Dates: start: 20120611, end: 20120611
  2. SAMSCA [Suspect]
     Dosage: 7.5 Mg milligram(s), qam
     Route: 048
     Dates: start: 20120612, end: 20120615
  3. SAMSCA [Suspect]
     Dosage: 15 Mg milligram(s), qam
     Route: 048
     Dates: start: 20120616, end: 20120625
  4. RENIVACE [Concomitant]
     Indication: CARDIAC FAILURE
     Dosage: 2.5 Mg milligram(s), daily dose
     Route: 048
     Dates: end: 20120703
  5. SELARA [Concomitant]
     Indication: CARDIAC FAILURE
     Dosage: 25 Mg milligram(s), daily dose
     Route: 048
  6. LASIX [Concomitant]
     Indication: CARDIAC FAILURE
     Dosage: 40 Mg milligram(s), daily dose
     Route: 048
  7. PIMOBENDAN [Concomitant]
     Indication: CARDIAC FAILURE
     Dosage: 1.25 Mg milligram(s), daily dose
     Route: 048
  8. WARFARIN [Concomitant]
     Dosage: 1 Mg milligram(s), daily dose
     Route: 048
  9. FLUITRAN [Concomitant]
     Indication: CARDIAC FAILURE
     Dosage: 1 Mg milligram(s), daily dose
     Route: 048
     Dates: start: 20120616

REACTIONS (4)
  - Blood pressure decreased [Unknown]
  - Thirst [Recovering/Resolving]
  - Cardiac failure [Unknown]
  - Nausea [Recovering/Resolving]
